FAERS Safety Report 5491403-5 (Version None)
Quarter: 2007Q4

REPORT INFORMATION
  Report Type: 
  Country: None (occurrence: None)
  Receive Date: 20071018
  Receipt Date: 20071005
  Transmission Date: 20080405
  Serious: Yes (Life-Threatening, Hospitalization, Other)
  Sender: FDA-Public Use
  Company Number: 2007S1009855

PATIENT
  Age: 58 Year
  Sex: Male

DRUGS (3)
  1. VERAPAMIL HYDROCHLORIDE [Suspect]
     Indication: HEART RATE IRREGULAR
     Dosage: 240 MG;X1;
  2. DIGOXIN [Suspect]
  3. WARFARIN SODIUM [Concomitant]

REACTIONS (15)
  - ATRIAL FIBRILLATION [None]
  - BLOOD CREATININE INCREASED [None]
  - BLOOD UREA INCREASED [None]
  - CARDIOACTIVE DRUG LEVEL BELOW THERAPEUTIC [None]
  - CARDIOGENIC SHOCK [None]
  - CARDIOMEGALY [None]
  - CONFUSIONAL STATE [None]
  - CYANOSIS [None]
  - DEPRESSED LEVEL OF CONSCIOUSNESS [None]
  - DRUG TOXICITY [None]
  - GENERAL PHYSICAL HEALTH DETERIORATION [None]
  - HEART RATE IRREGULAR [None]
  - LEFT VENTRICULAR DYSFUNCTION [None]
  - NO THERAPEUTIC RESPONSE [None]
  - VOMITING [None]
